FAERS Safety Report 7222381-6 (Version None)
Quarter: 2011Q1

REPORT INFORMATION
  Report Type: 
  Country: None (occurrence: None)
  Receive Date: 20110112
  Receipt Date: 20110110
  Transmission Date: 20110831
  Serious: Yes (Hospitalization, Other)
  Sender: FDA-Public Use
  Company Number: FR-BRISTOL-MYERS SQUIBB COMPANY-14926307

PATIENT
  Age: 75 Year
  Sex: Male

DRUGS (2)
  1. HYDREA [Suspect]
     Indication: ERYTHEMA
     Dates: start: 20091201
  2. MODURETIC 5-50 [Concomitant]
     Indication: HYPERTENSION

REACTIONS (5)
  - PYREXIA [None]
  - GASTRIC ULCER [None]
  - NAUSEA [None]
  - ERUCTATION [None]
  - GASTROINTESTINAL DISORDER [None]
